FAERS Safety Report 18916772 (Version 1)
Quarter: 2021Q1

REPORT INFORMATION
  Report Type: Spontaneous
  Country: US (occurrence: US)
  Receive Date: 20210219
  Receipt Date: 20210219
  Transmission Date: 20210420
  Serious: Yes (Other)
  Sender: FDA-Public Use
  Company Number: US-PFIZER INC-2021148541

PATIENT
  Sex: Male

DRUGS (2)
  1. FUROSEMIDE. [Suspect]
     Active Substance: FUROSEMIDE
     Dosage: 20 MG
  2. FUROSEMIDE. [Suspect]
     Active Substance: FUROSEMIDE
     Dosage: 80 MG

REACTIONS (1)
  - Diabetes mellitus [Unknown]
